FAERS Safety Report 5538271-0 (Version None)
Quarter: 2007Q4

REPORT INFORMATION
  Report Type: 
  Country: None (occurrence: None)
  Receive Date: 20071204
  Receipt Date: 20071119
  Transmission Date: 20080405
  Serious: Yes (Hospitalization)
  Sender: FDA-Public Use
  Company Number: 02100-JPN-07-0678

PATIENT
  Age: 70 Year
  Sex: Male

DRUGS (10)
  1. CILOSTAZOL [Suspect]
     Dosage: 200 MG, ORAL
     Route: 048
  2. TRICHLORMETHIAZIDE [Concomitant]
     Dosage: 1 MG, ORAL
     Route: 048
  3. NICORANDIL [Suspect]
     Dosage: 10 MG, ORAL
     Route: 048
  4. FENOFIBRATE [Suspect]
     Dosage: 100 MG, ORAL
     Route: 048
  5. CARVEDILOL [Suspect]
     Dosage: 20 MG, ORAL
     Route: 048
  6. OLMESARTAN MEDOXOMIL [Suspect]
     Dosage: 20 MG, ORAL
     Route: 048
  7. MEDOXOMIL [Suspect]
  8. MITIGLINIDE CALCIUM HYDRATE [Concomitant]
  9. ZOLPIDEM TARTRATE [Concomitant]
  10. SPHERICAL ABSORBENT COAL [Concomitant]

REACTIONS (2)
  - EOSINOPHILIC PNEUMONIA [None]
  - LYMPHOCYTE STIMULATION TEST POSITIVE [None]
